FAERS Safety Report 6147944-0 (Version None)
Quarter: 2009Q2

REPORT INFORMATION
  Report Type: 
  Country: None (occurrence: None)
  Receive Date: 20090408
  Receipt Date: 20090401
  Transmission Date: 20091009
  Serious: Yes (Other)
  Sender: FDA-Public Use
  Company Number: PHHY2009DE12769

PATIENT
  Sex: Male

DRUGS (3)
  1. ZOMETA [Suspect]
     Dosage: 4 MG  SINGLE DOSE
     Route: 042
     Dates: start: 20090304, end: 20090304
  2. TAXOTERE [Suspect]
     Indication: NASOPHARYNGEAL CANCER
     Dosage: UNK
     Route: 042
     Dates: start: 20090101, end: 20090301
  3. CITALOPRAM HYDROBROMIDE [Concomitant]
     Indication: DEPRESSION

REACTIONS (2)
  - INFLUENZA LIKE ILLNESS [None]
  - LEUKOPENIA [None]
